FAERS Safety Report 14188400 (Version 2)
Quarter: 2017Q4

REPORT INFORMATION
  Report Type: Spontaneous
  Country: DK (occurrence: DK)
  Receive Date: 20171114
  Receipt Date: 20171222
  Transmission Date: 20180321
  Serious: Yes (Hospitalization)
  Sender: FDA-Public Use
  Company Number: DK-OTSUKA-2017_024677

PATIENT
  Age: 38 Year
  Sex: Female
  Weight: 98.4 kg

DRUGS (6)
  1. ABILIFY MAINTENA [Suspect]
     Active Substance: ARIPIPRAZOLE
     Indication: SCHIZOPHRENIA
     Dosage: 400 MG, EVERY 28 DAYS
     Route: 030
     Dates: start: 20131001
  2. EPIRUBICIN ACTAVIS [Suspect]
     Active Substance: EPIRUBICIN
     Indication: BREAST CANCER METASTATIC
     Dosage: 180 MG, TIW
     Route: 042
     Dates: start: 201704, end: 20170606
  3. ZOLEDRONSYRE HOSPIRA [Concomitant]
     Active Substance: ZOLEDRONIC ACID
     Indication: METASTASES TO BONE
     Dosage: 4 MG EVERY DAY AS NEEDED. STRENGTH:4 MG/100 ML.
     Route: 042
     Dates: start: 20170515
  4. LETROZOL ORION [Concomitant]
     Indication: BREAST CANCER METASTATIC
     Dosage: 2.5 MG, QD
     Route: 048
     Dates: start: 20170807
  5. IBRANCE [Suspect]
     Active Substance: PALBOCICLIB
     Indication: BREAST CANCER METASTATIC
     Dosage: 125 MG TO BE TAKEN DAILY FOR 3 WEEKS. THEN ONE WEEK WITHOUT THIS MEDICINE
     Route: 065
     Dates: start: 20171002, end: 20171022
  6. ZOLADEX [Concomitant]
     Active Substance: GOSERELIN ACETATE
     Indication: HORMONE SUPPRESSION THERAPY
     Dosage: 3.6 MG, UNK (4 TIME IN A WEEK)
     Route: 058
     Dates: start: 20170807

REACTIONS (2)
  - Cardiac failure [Not Recovered/Not Resolved]
  - Dyspnoea [Unknown]

NARRATIVE: CASE EVENT DATE: 20171022
